FAERS Safety Report 10247355 (Version 1)
Quarter: 2014Q1

REPORT INFORMATION
  Report Type: Spontaneous
  Country: US (occurrence: None)
  Receive Date: 20140306
  Receipt Date: 20140306
  Transmission Date: 20141002
  Serious: Yes (Hospitalization)
  Sender: FDA-Public Use
  Company Number: 163-21880-13032435

PATIENT
  Age: 70 Year
  Sex: Male

DRUGS (5)
  1. REVLIMID (LENALIDOMIDE) (25 MILLIGRAM, CAPSULES) [Suspect]
     Indication: PLASMA CELL MYELOMA
     Dosage: 25 MG, 21 IN 28 D, PO
     Route: 048
     Dates: start: 20121201, end: 20121220
  2. ZOFRAN (ONDANSETRON HYDROCHLORIDE) (UNKNOWN) [Concomitant]
  3. OXYCODONE (OXYCODONE) (UNKNOWN) (OXYCODONE) [Concomitant]
  4. DEXAMETHASONE (DEXAMETHASONE) (UNKNOWN) [Concomitant]
  5. RADIOTHERAPY MIXTURE (VARIOUS THERAPEUTIC RADIOPHARMACEUTICALS) (UNKNOWN) [Concomitant]

REACTIONS (1)
  - Rash generalised [None]
